FAERS Safety Report 7179413-3 (Version None)
Quarter: 2010Q4

REPORT INFORMATION
  Report Type: 
  Country: None (occurrence: None)
  Receive Date: 20101217
  Receipt Date: 20101217
  Transmission Date: 20110411
  Serious: No
  Sender: FDA-Public Use
  Company Number: None

PATIENT
  Sex: Female
  Weight: 59.7 kg

DRUGS (3)
  1. PEG-L-ASPARAGINASE (PEGASPARGASE, ONCOSPAR) [Suspect]
     Dosage: 3880 MG
     Dates: end: 20101207
  2. VINCRISTINE SULFATE [Suspect]
     Dosage: 6 MG
     Dates: end: 20101206
  3. METHOTREXATE [Suspect]
     Dosage: 710 MG
     Dates: end: 20101206

REACTIONS (1)
  - BLOOD BILIRUBIN INCREASED [None]
